FAERS Safety Report 4930972-8 (Version None)
Quarter: 2006Q1

REPORT INFORMATION
  Report Type: 
  Country: None (occurrence: None)
  Receive Date: 20060127
  Receipt Date: 20051216
  Transmission Date: 20060701
  Serious: Yes (Other)
  Sender: FDA-Public Use
  Company Number: 2005146943

PATIENT
  Age: 85 Year
  Sex: Female

DRUGS (1)
  1. LYRICA [Suspect]
     Indication: POST HERPETIC NEURALGIA
     Dosage: 100 MG (50 MG, 2 IN 1 D) UNKNOWN
     Route: 065
     Dates: start: 20051013, end: 20051109

REACTIONS (4)
  - BALANCE DISORDER [None]
  - DIZZINESS [None]
  - SOMNOLENCE [None]
  - TREMOR [None]
